FAERS Safety Report 23161719 (Version 2)
Quarter: 2023Q4

REPORT INFORMATION
  Report Type: Spontaneous
  Country: FR (occurrence: FR)
  Receive Date: 20231108
  Receipt Date: 20231118
  Transmission Date: 20240110
  Serious: Yes (Other)
  Sender: FDA-Public Use
  Company Number: None

PATIENT
  Age: 12 Year
  Sex: Female
  Weight: 83 kg

DRUGS (3)
  1. RISPERIDONE [Suspect]
     Active Substance: RISPERIDONE
     Indication: Aggression
     Dosage: BETWEEN 0.5 AND 1MG/DAY
     Dates: start: 20220210, end: 20230920
  2. TRIMEPRAZINE [Suspect]
     Active Substance: TRIMEPRAZINE
     Indication: Sedation
     Dosage: BETWEEN 5 AND 10MG/DAY
     Dates: start: 20220118, end: 20230929
  3. LEVOMEPROMAZINE [Suspect]
     Active Substance: LEVOMEPROMAZINE
     Indication: Antipsychotic therapy
     Dosage: BETWEEN 5 AND 25MG/DAY
     Dates: start: 20220110

REACTIONS (1)
  - Hyperprolactinaemia [Recovering/Resolving]

NARRATIVE: CASE EVENT DATE: 20230214
